FAERS Safety Report 7807160-0 (Version None)
Quarter: 2011Q4

REPORT INFORMATION
  Report Type: 
  Country: None (occurrence: None)
  Receive Date: 20111011
  Receipt Date: 20110929
  Transmission Date: 20120403
  Serious: Yes (Other)
  Sender: FDA-Public Use
  Company Number: PHHY2011BR86876

PATIENT
  Sex: Female

DRUGS (1)
  1. DIOVAN [Suspect]
     Dosage: 80 MG, UNK

REACTIONS (4)
  - DIABETES MELLITUS [None]
  - JOINT DISLOCATION [None]
  - SPINAL DISORDER [None]
  - NEOPLASM MALIGNANT [None]
